FAERS Safety Report 9083980 (Version 1)
Quarter: 2013Q1

REPORT INFORMATION
  Report Type: Report from Study
  Country: US (occurrence: US)
  Receive Date: 20130131
  Receipt Date: 20130131
  Transmission Date: 20140127
  Serious: No
  Sender: FDA-Public Use
  Company Number: US-ABBOTT-12P-163-0999604-00

PATIENT
  Age: 32 Year
  Sex: Female

DRUGS (8)
  1. HUMIRA [Suspect]
     Indication: PSORIATIC ARTHROPATHY
     Route: 058
     Dates: start: 201203
  2. SEROQUEL [Concomitant]
     Indication: POST-TRAUMATIC STRESS DISORDER
  3. SEROQUEL [Concomitant]
     Indication: BIPOLAR DISORDER
  4. SEROQUEL [Concomitant]
     Indication: ANXIETY DISORDER
  5. CELEXA [Concomitant]
     Indication: POST-TRAUMATIC STRESS DISORDER
  6. CELEXA [Concomitant]
     Indication: BIPOLAR DISORDER
  7. CELEXA [Concomitant]
     Indication: ANXIETY DISORDER
  8. TRAMADOL [Concomitant]
     Indication: PAIN

REACTIONS (3)
  - Migraine [Not Recovered/Not Resolved]
  - Neck pain [Not Recovered/Not Resolved]
  - Pain in jaw [Not Recovered/Not Resolved]
